FAERS Safety Report 6467462-X (Version None)
Quarter: 2009Q4

REPORT INFORMATION
  Report Type: 
  Country: None (occurrence: None)
  Receive Date: 20091202
  Receipt Date: 20091124
  Transmission Date: 20100525
  Serious: Yes (Other)
  Sender: FDA-Public Use
  Company Number: GXKR2009GB12751

PATIENT
  Age: 39 Year
  Sex: Female

DRUGS (2)
  1. CLOZAPINE (NGX) [Suspect]
     Indication: SCHIZOPHRENIA
     Route: 065
  2. CLOZAPINE (NGX) [Suspect]
     Dosage: 100 MG, BID (DOSE ESCALATION ON SECOND WEEK)
     Route: 065

REACTIONS (5)
  - BLINDNESS [None]
  - CEREBRAL INFARCTION [None]
  - CEREBRAL VENOUS THROMBOSIS [None]
  - HEMIPARESIS [None]
  - ISCHAEMIC STROKE [None]
